FAERS Safety Report 7585031-5 (Version None)
Quarter: 2011Q2

REPORT INFORMATION
  Report Type: 
  Country: None (occurrence: None)
  Receive Date: 20110630
  Receipt Date: 20110628
  Transmission Date: 20111010
  Serious: Yes (Hospitalization, Other)
  Sender: FDA-Public Use
  Company Number: US-MERCK-1006USA02450

PATIENT
  Age: 61 Year
  Sex: Female
  Weight: 61 kg

DRUGS (15)
  1. FOSAMAX [Suspect]
     Route: 048
     Dates: start: 20010801, end: 20090101
  2. FOSAMAX [Suspect]
     Indication: OSTEOPOROSIS
     Route: 048
     Dates: start: 20000501, end: 20010101
  3. ASCORBIC ACID [Concomitant]
     Route: 065
  4. ALENDRONATE SODIUM [Suspect]
     Route: 065
  5. FOSAMAX [Suspect]
     Route: 048
     Dates: start: 20010801, end: 20090101
  6. FOSAMAX [Suspect]
     Route: 048
     Dates: end: 20000801
  7. FOSAMAX [Suspect]
     Route: 065
     Dates: end: 20061019
  8. CYANOCOBALAMIN [Concomitant]
     Route: 065
  9. FOSAMAX [Suspect]
     Route: 048
     Dates: start: 20000101, end: 20010101
  10. CALCIUM (UNSPECIFIED) [Concomitant]
     Route: 065
  11. FOSAMAX [Suspect]
     Route: 048
     Dates: start: 20000101, end: 20010101
  12. FOSAMAX [Suspect]
     Route: 048
     Dates: end: 20000801
  13. VITAMIN D (UNSPECIFIED) [Concomitant]
     Route: 065
  14. FOSAMAX [Suspect]
     Indication: BONE DENSITY DECREASED
     Route: 048
     Dates: start: 20000501, end: 20010101
  15. FOSAMAX [Suspect]
     Route: 065
     Dates: end: 20061019

REACTIONS (32)
  - SPONDYLOLISTHESIS [None]
  - ARTERIOSCLEROSIS [None]
  - HYPERTENSION [None]
  - INTERMITTENT CLAUDICATION [None]
  - MORTON'S NEUROMA [None]
  - PAIN IN EXTREMITY [None]
  - OSTEOPENIA [None]
  - MUSCULOSKELETAL STIFFNESS [None]
  - SPINAL DISORDER [None]
  - URINARY HESITATION [None]
  - ALTERED STATE OF CONSCIOUSNESS [None]
  - SPINAL COLUMN STENOSIS [None]
  - HERPES ZOSTER [None]
  - INSOMNIA [None]
  - RASH [None]
  - INTERVERTEBRAL DISC DEGENERATION [None]
  - BACK PAIN [None]
  - ANEURYSM [None]
  - KYPHOSIS [None]
  - ABDOMINAL PAIN UPPER [None]
  - HYPOAESTHESIA [None]
  - BURSITIS [None]
  - OSTEOARTHRITIS [None]
  - SACROILIITIS [None]
  - NEUROPATHY PERIPHERAL [None]
  - NAUSEA [None]
  - SPINAL COMPRESSION FRACTURE [None]
  - BONE MARROW OEDEMA [None]
  - FEMUR FRACTURE [None]
  - MUSCLE SPASMS [None]
  - OSTEOPOROSIS [None]
  - SPINAL OSTEOARTHRITIS [None]
